FAERS Safety Report 9951779 (Version 1)
Quarter: 2014Q1

REPORT INFORMATION
  Report Type: Spontaneous
  Country: US (occurrence: US)
  Receive Date: 20140304
  Receipt Date: 20140304
  Transmission Date: 20141002
  Serious: No
  Sender: FDA-Public Use
  Company Number: US-AMGEN-USASP2013091647

PATIENT
  Age: 61 Year
  Sex: Male
  Weight: 97.51 kg

DRUGS (9)
  1. ENBREL [Suspect]
     Indication: PRODUCT USED FOR UNKNOWN INDICATION
     Dosage: 50 MG, QWK
     Route: 058
  2. METHOTREXATE [Concomitant]
     Dosage: UNK
  3. AMLODIPINE [Concomitant]
     Dosage: 2.5 MG, UNK
  4. METFORMIN [Concomitant]
     Dosage: 500 MG, UNK
  5. LISINOPRIL [Concomitant]
     Dosage: 2.5 MG, UNK
  6. HYDROXYCHLOROQUINE [Concomitant]
     Dosage: 200 MG, UNK
  7. METHYLPRED [Concomitant]
     Dosage: 4 MG, UNK
  8. FOLIC ACID [Concomitant]
     Dosage: UNK
  9. XARELTO [Concomitant]
     Dosage: 10 MG, UNK

REACTIONS (1)
  - Pruritus [Unknown]
